FAERS Safety Report 6644558-0 (Version None)
Quarter: 2010Q1

REPORT INFORMATION
  Report Type: 
  Country: None (occurrence: None)
  Receive Date: 20100317
  Receipt Date: 20100305
  Transmission Date: 20100710
  Serious: Yes (Other)
  Sender: FDA-Public Use
  Company Number: 2010AP000447

PATIENT
  Age: 27 Year
  Sex: Male

DRUGS (4)
  1. RISPERIDONE [Suspect]
     Indication: SCHIZOPHRENIA
     Dosage: 1 MG
     Route: 048
     Dates: start: 20100202, end: 20100203
  2. BETAMETHASONE VALERATE [Concomitant]
  3. CLIOQUINOL (CLIOQUINOL) [Concomitant]
  4. CHLORPHENIRAMINE MALEATE [Concomitant]

REACTIONS (5)
  - DRY SKIN [None]
  - ERYTHEMA [None]
  - PRURITUS [None]
  - RASH [None]
  - URTICARIA [None]
